FAERS Safety Report 8583482 (Version 3)
Quarter: 2012Q4

REPORT INFORMATION
  Report Type: 
  Country: US (occurrence: US)
  Receive Date: 20120529
  Receipt Date: 20121018
  Transmission Date: 20130627
  Serious: Yes (Hospitalization)
  Sender: FDA-Public Use
  Company Number: US-BAYER-2012-052077

PATIENT
  Age: 31 Year
  Sex: Female
  Weight: 74.83 kg

DRUGS (19)
  1. YAZ [Suspect]
     Indication: CONTRACEPTION
     Dosage: UNK
     Dates: start: 200706, end: 201008
  2. YASMIN [Suspect]
     Indication: CONTRACEPTION
     Dosage: UNK
     Dates: start: 2006, end: 200705
  3. LEVOTHYROXINE [Concomitant]
     Dosage: 50 ?g, QD
     Route: 048
     Dates: start: 20100810
  4. OMEPRAZOLE [Concomitant]
  5. CLONAZEPAM [Concomitant]
     Dosage: 1 mg, PRN
     Dates: start: 20100803
  6. HYOSCYAMINE [Concomitant]
     Dosage: UNK UNK, PRN
  7. MIRALAX [Concomitant]
  8. FLORASTOR [Concomitant]
  9. OXYCODONE/APAP [Concomitant]
     Dosage: 5/325
     Route: 048
     Dates: start: 20100614
  10. CLINDAMYCIN [Concomitant]
     Dosage: 300 mg, UNK
     Route: 048
     Dates: start: 20100614
  11. CLINDAMYCIN [Concomitant]
     Dosage: 300 mg, UNK
     Route: 048
     Dates: start: 20100615
  12. PREDNISONE [Concomitant]
     Dosage: 20 mg, UNK
     Route: 048
     Dates: start: 20100615
  13. FLAGYL [Concomitant]
     Indication: CLOSTRIDIUM DIFFICILE COLITIS
     Dosage: UNK
     Route: 048
     Dates: start: 201007
  14. VANCOMYCIN [Concomitant]
     Dosage: UNK
     Dates: start: 20100810
  15. PRILOSEC [Concomitant]
     Dosage: UNK
     Route: 048
     Dates: start: 20100810
  16. BENTYL [Concomitant]
     Dosage: UNK
     Dates: start: 20100810
  17. LIPITOR [Concomitant]
     Dosage: UNK
     Dates: start: 2002
  18. LEVSIN [Concomitant]
  19. KLONOPIN [Concomitant]
     Indication: ANXIETY

REACTIONS (6)
  - Deep vein thrombosis [None]
  - Pulmonary embolism [None]
  - Pain [None]
  - Injury [None]
  - Depression [None]
  - Anxiety [None]
